FAERS Safety Report 4986136-5 (Version None)
Quarter: 2006Q2

REPORT INFORMATION
  Report Type: 
  Country: None (occurrence: None)
  Receive Date: 20060428
  Receipt Date: 20060418
  Transmission Date: 20061013
  Serious: Yes (Hospitalization, Other)
  Sender: FDA-Public Use
  Company Number: US-JNJFOC-20050404840

PATIENT
  Sex: Female
  Weight: 73.94 kg

DRUGS (11)
  1. DURAGESIC-100 [Suspect]
     Route: 062
  2. DURAGESIC-100 [Suspect]
     Route: 062
  3. DURAGESIC-100 [Suspect]
     Route: 062
  4. TIZANIDINE HCL [Suspect]
     Indication: PAIN
  5. ACTIQ [Concomitant]
  6. ROBAXIN [Concomitant]
  7. GABITRIL [Concomitant]
  8. NEURONTIN [Concomitant]
  9. HYDROCODONE BITARTRATE [Concomitant]
  10. ZOLOFT [Concomitant]
  11. VIOXX [Concomitant]

REACTIONS (13)
  - ASTHENIA [None]
  - BRADYCARDIA [None]
  - DIZZINESS [None]
  - FALL [None]
  - HYPOAESTHESIA [None]
  - HYPOTENSION [None]
  - HYPOTHYROIDISM [None]
  - NAUSEA [None]
  - NODAL ARRHYTHMIA [None]
  - OVERDOSE [None]
  - SKIN LACERATION [None]
  - SYNCOPE [None]
  - TREMOR [None]
